FAERS Safety Report 24528590 (Version 1)
Quarter: 2024Q4

REPORT INFORMATION
  Report Type: Spontaneous
  Country: PL (occurrence: PL)
  Receive Date: 20241021
  Receipt Date: 20241021
  Transmission Date: 20250115
  Serious: Yes (Other)
  Sender: MERCK
  Company Number: None

PATIENT
  Age: 1 Month
  Sex: Male

DRUGS (7)
  1. BCG LIVE [Suspect]
     Active Substance: BACILLUS CALMETTE-GUERIN SUBSTRAIN TICE LIVE ANTIGEN
     Dosage: UNK
     Dates: start: 20200214
  2. EUVAX B [Suspect]
     Active Substance: HEPATITIS B VIRUS VACCINE
     Dosage: UNK
     Dates: start: 20200214
  3. EUVAX B [Suspect]
     Active Substance: HEPATITIS B VIRUS VACCINE
     Dosage: UNK
  4. VITAMIN K [Suspect]
     Active Substance: PHYTONADIONE
     Dosage: UNK
  5. HYDROCORTISONE [Suspect]
     Active Substance: HYDROCORTISONE
     Dosage: UNK
  6. PENTOXIFYLLINE [Concomitant]
     Active Substance: PENTOXIFYLLINE
     Dosage: UNK
  7. DEXTROSE [Concomitant]
     Active Substance: DEXTROSE MONOHYDRATE
     Dosage: UNK

REACTIONS (5)
  - Hypoglycaemia [Unknown]
  - Decreased appetite [Unknown]
  - Apathy [Unknown]
  - Apnoea [Unknown]
  - Pallor [Unknown]

NARRATIVE: CASE EVENT DATE: 20200214
